FAERS Safety Report 23629045 (Version 7)
Quarter: 2025Q3

REPORT INFORMATION
  Report Type: Report from Study
  Country: EU (occurrence: EU)
  Receive Date: 20240313
  Receipt Date: 20250721
  Transmission Date: 20251021
  Serious: Yes (Hospitalization)
  Sender: EISAI
  Company Number: EU-Eisai-EC-2024-159228

PATIENT
  Age: 68 Year
  Sex: Male

DRUGS (9)
  1. LENVATINIB [Suspect]
     Active Substance: LENVATINIB
     Indication: Pleural mesothelioma malignant
     Dates: start: 20230920, end: 20240206
  2. LENVATINIB [Suspect]
     Active Substance: LENVATINIB
     Dates: start: 20240214, end: 2024
  3. LENVATINIB [Suspect]
     Active Substance: LENVATINIB
     Dates: start: 20240706, end: 20240717
  4. LENVATINIB [Suspect]
     Active Substance: LENVATINIB
     Dates: end: 20241224
  5. PEMBROLIZUMAB [Suspect]
     Active Substance: PEMBROLIZUMAB
     Indication: Pleural mesothelioma malignant
     Dates: start: 20230920
  6. PEMBROLIZUMAB [Suspect]
     Active Substance: PEMBROLIZUMAB
     Dates: start: 20240620, end: 20240710
  7. PEMBROLIZUMAB [Suspect]
     Active Substance: PEMBROLIZUMAB
     Dates: end: 20241224
  8. ACETAMINOPHEN [Concomitant]
     Active Substance: ACETAMINOPHEN
  9. NITROFURANTOIN [Concomitant]
     Active Substance: NITROFURANTOIN
     Dates: start: 20240708, end: 20240715

REACTIONS (3)
  - Malaise [Recovered/Resolved]
  - Urinary tract infection [Recovered/Resolved]
  - Dehydration [Recovered/Resolved]

NARRATIVE: CASE EVENT DATE: 20240206
